FAERS Safety Report 8913399 (Version 4)
Quarter: 2013Q2

REPORT INFORMATION
  Report Type: Spontaneous
  Country: FR (occurrence: FR)
  Receive Date: 20121116
  Receipt Date: 20130503
  Transmission Date: 20140414
  Serious: Yes (Hospitalization, Other)
  Sender: FDA-Public Use
  Company Number: FR-PFIZER INC-2012158898

PATIENT
  Age: 44 Year
  Sex: Male

DRUGS (10)
  1. CHAMPIX [Suspect]
     Indication: SMOKING CESSATION THERAPY
     Dosage: 0.5 MG, 1X/DAY
     Dates: start: 20100402, end: 20100404
  2. CHAMPIX [Suspect]
     Dosage: 0.5 MG, 2X/DAY
     Dates: start: 20100405, end: 20100408
  3. CHAMPIX [Suspect]
     Dosage: 0.5 MG, 4X/DAY
     Dates: start: 20100409, end: 2010
  4. CHAMPIX [Suspect]
     Dosage: 0.5 MG, 1X/DAY
     Dates: start: 20101027, end: 20101029
  5. CHAMPIX [Suspect]
     Dosage: 0.5 MG, 2X/DAY
     Dates: start: 20101030, end: 20101102
  6. CHAMPIX [Suspect]
     Dosage: 1 MG, 2X/DAY
     Dates: start: 20101103, end: 20101119
  7. NORVIR [Concomitant]
     Indication: HIV INFECTION
     Dosage: ^100^ ONCE DAILY
     Dates: start: 20081021
  8. ISENTRESS [Concomitant]
     Indication: HIV INFECTION
     Dosage: ^400^ TWICE DAILY
     Dates: start: 20081021
  9. INTELENCE [Concomitant]
     Indication: HIV INFECTION
     Dosage: ^200^ TWICE DAILY
     Dates: start: 20081021
  10. PREZISTA [Concomitant]
     Indication: HIV INFECTION
     Dosage: ^800^ ONCE DAILY
     Dates: start: 20081021

REACTIONS (7)
  - Abnormal behaviour [Unknown]
  - Depressed mood [Unknown]
  - Cognitive disorder [Unknown]
  - Delusion [Unknown]
  - Psychotic disorder [Unknown]
  - Anxiety [Recovered/Resolved]
  - Insomnia [Unknown]
